FAERS Safety Report 19069030 (Version 1)
Quarter: 2021Q1

REPORT INFORMATION
  Report Type: Spontaneous
  Country: US (occurrence: US)
  Receive Date: 20210329
  Receipt Date: 20210329
  Transmission Date: 20210420
  Serious: Yes (Disabling)
  Sender: FDA-Public Use
  Company Number: None

PATIENT
  Age: 69 Year
  Sex: Female
  Weight: 79.83 kg

DRUGS (5)
  1. BAMLANIVIMAB FOR CORONAVIRUS DISEASE 2019 BAM [Suspect]
     Active Substance: BAMLANIVIMAB
     Indication: LUNG DISORDER
  2. ASPIRIN. [Concomitant]
     Active Substance: ASPIRIN
  3. BAMLANIVIMAB FOR CORONAVIRUS DISEASE 2019 BAM [Suspect]
     Active Substance: BAMLANIVIMAB
     Indication: LUNG DISORDER
     Route: 042
     Dates: start: 20201224, end: 20201224
  4. LISINOPRIL/HCTZ [Concomitant]
     Active Substance: HYDROCHLOROTHIAZIDE\LISINOPRIL
  5. BAMLANIVIMAB FOR CORONAVIRUS DISEASE 2019 BAM [Suspect]
     Active Substance: BAMLANIVIMAB
     Indication: COVID-19
     Route: 042
     Dates: start: 20201224, end: 20201224

REACTIONS (2)
  - Urticaria [None]
  - Lip swelling [None]

NARRATIVE: CASE EVENT DATE: 20201225
